FAERS Safety Report 9784118 (Version 1)
Quarter: 2013Q4

REPORT INFORMATION
  Report Type: Spontaneous
  Country: RU (occurrence: RU)
  Receive Date: 20131226
  Receipt Date: 20131226
  Transmission Date: 20140711
  Serious: Yes (Death)
  Sender: FDA-Public Use
  Company Number: PHHY2013RU151442

PATIENT
  Age: 59 Year
  Sex: Female

DRUGS (1)
  1. GLIVEC [Suspect]
     Route: 048

REACTIONS (3)
  - Cervix carcinoma recurrent [Fatal]
  - Metastases to liver [Fatal]
  - Disease progression [Fatal]
